FAERS Safety Report 24918074 (Version 1)
Quarter: 2025Q1

REPORT INFORMATION
  Report Type: Spontaneous
  Country: IT (occurrence: IT)
  Receive Date: 20250203
  Receipt Date: 20250203
  Transmission Date: 20250409
  Serious: Yes (Life-Threatening, Other)
  Sender: PFIZER
  Company Number: None

PATIENT
  Age: 17 Year
  Sex: Female
  Weight: 38 kg

DRUGS (1)
  1. TAVOR (LORAZEPAM) [Suspect]
     Active Substance: LORAZEPAM
     Route: 048
     Dates: start: 20241221, end: 20241221

REACTIONS (7)
  - Toxicity to various agents [Recovering/Resolving]
  - Somnolence [Recovering/Resolving]
  - Vomiting [Recovering/Resolving]
  - Panic attack [Recovering/Resolving]
  - Amnesia [Recovering/Resolving]
  - Drug abuse [Recovered/Resolved]
  - Suicide attempt [Recovering/Resolving]

NARRATIVE: CASE EVENT DATE: 20241221
